FAERS Safety Report 20855881 (Version 1)
Quarter: 2022Q2

REPORT INFORMATION
  Report Type: Spontaneous
  Country: AU (occurrence: AU)
  Receive Date: 20220520
  Receipt Date: 20220520
  Transmission Date: 20220721
  Serious: Yes (Other)
  Sender: FDA-Public Use
  Company Number: AU-BoehringerIngelheim-2022-BI-171725

PATIENT
  Age: 5 Year
  Sex: Female

DRUGS (1)
  1. CLONIDINE [Suspect]
     Active Substance: CLONIDINE
     Indication: Product used for unknown indication
     Dosage: 50MCG IN THE MORNING AND 100MCG BEFORE ?BED.  LIKELY CONSUMED A FEW  TABLETS (LIKELY 2-3) IN ADDITIO
     Route: 048

REACTIONS (7)
  - Bradycardia [Unknown]
  - Hypothermia [Unknown]
  - Miosis [Unknown]
  - Somnolence [Unknown]
  - Hypotension [Unknown]
  - Accidental overdose [Unknown]
  - Product use issue [Unknown]

NARRATIVE: CASE EVENT DATE: 20210409
